FAERS Safety Report 5088961-1 (Version None)
Quarter: 2006Q3

REPORT INFORMATION
  Report Type: 
  Country: None (occurrence: None)
  Receive Date: 20060825
  Receipt Date: 20060331
  Transmission Date: 20061208
  Serious: Yes (Other)
  Sender: FDA-Public Use
  Company Number: GB-SANOFI-SYNTHELABO-A01200602629

PATIENT
  Age: 70 Year
  Sex: Female
  Weight: 58 kg

DRUGS (8)
  1. RALTITREXED [Suspect]
     Indication: GASTRIC CANCER
     Dosage: UNK
     Route: 042
     Dates: start: 20060105, end: 20060105
  2. ACETAMINOPHEN [Concomitant]
     Route: 065
  3. LOPERAMIDE [Concomitant]
     Route: 065
  4. NIFEDIPINE [Concomitant]
     Route: 065
     Dates: start: 20060202
  5. PREDNISOLONE [Concomitant]
     Route: 065
     Dates: start: 20060202
  6. PREDNISOLONE [Concomitant]
  7. ANTIBIOTICS [Concomitant]
     Route: 065
  8. ELOXATIN [Suspect]
     Indication: GASTRIC CANCER
     Route: 042
     Dates: start: 20060105, end: 20060105

REACTIONS (5)
  - BLOOD DISORDER [None]
  - BLOOD PRESSURE AMBULATORY INCREASED [None]
  - BLOOD PRESSURE INCREASED [None]
  - INFECTION [None]
  - PROTEINURIA [None]
